FAERS Safety Report 6331753-3 (Version None)
Quarter: 2009Q3

REPORT INFORMATION
  Report Type: 
  Country: None (occurrence: None)
  Receive Date: 20090827
  Receipt Date: 20090824
  Transmission Date: 20100115
  Serious: Yes (Death, Hospitalization)
  Sender: FDA-Public Use
  Company Number: FR-ABBOTT-09P-056-0592855-00

PATIENT
  Sex: Male
  Weight: 30 kg

DRUGS (1)
  1. HUMIRA [Suspect]
     Indication: CROHN'S DISEASE
     Route: 058
     Dates: start: 20090609, end: 20090727

REACTIONS (9)
  - CHILLS [None]
  - COUGH [None]
  - GENERAL PHYSICAL HEALTH DETERIORATION [None]
  - INFECTION [None]
  - INTERSTITIAL LUNG DISEASE [None]
  - MEASLES [None]
  - PYREXIA [None]
  - RESPIRATORY DISTRESS [None]
  - WEIGHT DECREASED [None]
